FAERS Safety Report 23930687 (Version 1)
Quarter: 2024Q2

REPORT INFORMATION
  Report Type: Spontaneous
  Country: EE (occurrence: EE)
  Receive Date: 20240603
  Receipt Date: 20240603
  Transmission Date: 20240716
  Serious: Yes (Other)
  Sender: FDA-Public Use
  Company Number: EE-ABBVIE-5780428

PATIENT
  Age: 31 Year
  Sex: Female
  Weight: 73 kg

DRUGS (2)
  1. RINVOQ [Suspect]
     Active Substance: UPADACITINIB
     Indication: Crohn^s disease
     Route: 048
     Dates: start: 20240415, end: 20240517
  2. SERTACONAZOLE NITRATE [Concomitant]
     Active Substance: SERTACONAZOLE NITRATE
     Indication: Depression
     Route: 048
     Dates: start: 202401

REACTIONS (2)
  - Haematoma [Recovered/Resolved]
  - Epistaxis [Recovered/Resolved]

NARRATIVE: CASE EVENT DATE: 20240418
